FAERS Safety Report 24221483 (Version 1)
Quarter: 2024Q3

REPORT INFORMATION
  Report Type: Spontaneous
  Country: US (occurrence: US)
  Receive Date: 20240819
  Receipt Date: 20240819
  Transmission Date: 20241017
  Serious: Yes (Hospitalization, Other)
  Sender: EPIC PHARM
  Company Number: US-EPICPHARMA-US-2024EPCLIT00971

PATIENT
  Age: 38 Year
  Sex: Female

DRUGS (6)
  1. TRIAMCINOLONE ACETONIDE [Suspect]
     Active Substance: TRIAMCINOLONE ACETONIDE
     Indication: Immunosuppressant drug therapy
     Route: 065
  2. DECADRON [Suspect]
     Active Substance: DEXAMETHASONE
     Indication: Immunosuppressant drug therapy
     Route: 042
  3. PREDNISONE [Suspect]
     Active Substance: PREDNISONE
     Indication: Immunosuppressant drug therapy
     Dosage: FOR 4 DAYS
     Route: 065
  4. PREDNISONE [Suspect]
     Active Substance: PREDNISONE
     Dosage: FOR 4 DAYS
     Route: 065
  5. PREDNISONE [Suspect]
     Active Substance: PREDNISONE
     Dosage: FOR 4 DAYS
     Route: 065
  6. PREDNISONE [Suspect]
     Active Substance: PREDNISONE
     Dosage: FOR 4 DAYS
     Route: 065

REACTIONS (3)
  - Mucormycosis [Recovered/Resolved]
  - Sinusitis fungal [Recovered/Resolved]
  - Product use in unapproved indication [Unknown]
